FAERS Safety Report 8834738 (Version 1)
Quarter: 2012Q4

REPORT INFORMATION
  Report Type: 
  Country: DE (occurrence: CH)
  Receive Date: 20121010
  Receipt Date: 20121010
  Transmission Date: 20130627
  Serious: Yes (Hospitalization)
  Sender: FDA-Public Use
  Company Number: CH-FRI-1000039245

PATIENT
  Sex: Female

DRUGS (9)
  1. MEMANTINE [Suspect]
     Dosage: 20 mg
     Dates: start: 2011, end: 20120123
  2. MEMANTINE [Suspect]
     Dosage: 10 mg
     Dates: start: 20120124, end: 20120206
  3. IMODIUM ^JANSSEN^ [Suspect]
     Dosage: 2 mg
     Route: 048
     Dates: start: 20120112, end: 20120114
  4. MORPHINE SULFATE [Suspect]
     Dosage: 45 mg
     Route: 042
     Dates: start: 20111219, end: 20111220
  5. OCTREOTIDE [Concomitant]
     Dosage: 0.9 mg
     Dates: start: 20111219, end: 20111229
  6. CIPRALEX [Concomitant]
     Dosage: 10 mg
  7. GLUCOPHAGE [Concomitant]
     Dosage: 1700 mg
     Route: 048
  8. CLEXANE [Concomitant]
     Dosage: 40 mg
     Route: 058
     Dates: start: 20120119
  9. METRONIDAZOLE [Concomitant]
     Dosage: 1500
     Route: 042
     Dates: start: 20111221, end: 20111223

REACTIONS (3)
  - Lipase increased [Unknown]
  - Diarrhoea [None]
  - Pyrexia [None]
